FAERS Safety Report 25582946 (Version 1)
Quarter: 2025Q3

REPORT INFORMATION
  Report Type: Spontaneous
  Country: CN (occurrence: CN)
  Receive Date: 20250721
  Receipt Date: 20250721
  Transmission Date: 20251020
  Serious: Yes (Other)
  Sender: Haleon PLC
  Company Number: CN-HALEON-2253069

PATIENT
  Age: 20 Year
  Sex: Female
  Weight: 55 kg

DRUGS (5)
  1. IBUPROFEN [Suspect]
     Active Substance: IBUPROFEN
     Indication: Intentional self-injury
     Dosage: 30 CAPSULES, SUSTAINED-RELEASE CAPSULES
     Route: 048
     Dates: start: 20250328, end: 20250328
  2. LORATADINE [Suspect]
     Active Substance: LORATADINE
     Indication: Intentional self-injury
     Dosage: 10 TABLETS
     Route: 048
     Dates: start: 20250328, end: 20250328
  3. QUETIAPINE [Suspect]
     Active Substance: QUETIAPINE
     Indication: Intentional self-injury
     Dosage: 20 TABLETS
     Route: 048
     Dates: start: 20250328, end: 20250328
  4. LITHIUM CARBONATE [Suspect]
     Active Substance: LITHIUM CARBONATE
     Indication: Intentional self-injury
     Dosage: 10 SUSTAINED-RELEASE TABLETS
     Route: 048
     Dates: start: 20250328, end: 20250328
  5. ALPRAZOLAM [Suspect]
     Active Substance: ALPRAZOLAM
     Indication: Intentional self-injury
     Dosage: 8 TABLETS
     Route: 048
     Dates: start: 20250328, end: 20250328

REACTIONS (4)
  - Loss of consciousness [Recovering/Resolving]
  - Dizziness [Recovering/Resolving]
  - Confusional state [Recovering/Resolving]
  - Toxicity to various agents [Recovering/Resolving]

NARRATIVE: CASE EVENT DATE: 20250328
